FAERS Safety Report 7940884-3 (Version None)
Quarter: 2011Q4

REPORT INFORMATION
  Report Type: 
  Country: None (occurrence: None)
  Receive Date: 20111128
  Receipt Date: 20111122
  Transmission Date: 20120403
  Serious: Yes (Life-Threatening, Other)
  Sender: FDA-Public Use
  Company Number: FR-PFIZER INC-2011237019

PATIENT
  Age: 65 Year
  Sex: Male

DRUGS (3)
  1. SUTENT [Suspect]
     Dosage: 50 MG, 1X/DAY, 4 WEEKS/2 WEEKS OFF
     Route: 048
     Dates: start: 20110914, end: 20111012
  2. SUTENT [Suspect]
     Indication: RENAL CANCER
     Dosage: 50 MG, 1X/DAY, 4WEEKS ON/2 WEEKS OFF
     Route: 048
     Dates: start: 20110803, end: 20110831
  3. SUTENT [Suspect]
     Dosage: 50 MG, 1X/DAY, 4 WEEKS/2 WEEKS OFF
     Route: 048

REACTIONS (3)
  - HYPERTENSION [None]
  - FATIGUE [None]
  - HEADACHE [None]
